FAERS Safety Report 21022580 (Version 3)
Quarter: 2022Q3

REPORT INFORMATION
  Report Type: Spontaneous
  Country: US (occurrence: US)
  Receive Date: 20220629
  Receipt Date: 20220714
  Transmission Date: 20221026
  Serious: Yes (Other)
  Sender: FDA-Public Use
  Company Number: US-PFIZER INC-202200901518

PATIENT
  Age: 23 Year
  Sex: Male
  Weight: 84.37 kg

DRUGS (1)
  1. VIAGRA [Suspect]
     Active Substance: SILDENAFIL CITRATE
     Indication: Erectile dysfunction
     Dosage: 150 MG

REACTIONS (3)
  - Overdose [Unknown]
  - Erection increased [Unknown]
  - Penile pain [Unknown]
